FAERS Safety Report 10905168 (Version 1)
Quarter: 2015Q1

REPORT INFORMATION
  Report Type: Spontaneous
  Country: US (occurrence: None)
  Receive Date: 20150107
  Receipt Date: 20150107
  Transmission Date: 20150721
  Serious: No
  Sender: FDA-Public Use
  Company Number: 2014TUS012248

PATIENT
  Age: 64 Year
  Sex: Female
  Weight: 74.4 kg

DRUGS (8)
  1. CONTRAVE [Suspect]
     Active Substance: BUPROPION HYDROCHLORIDE\NALTREXONE HYDROCHLORIDE
     Indication: OVERWEIGHT
     Dosage: 1 TAB AM, SECOND WEEK
     Route: 048
     Dates: start: 20141030, end: 20141117
  2. LEVOTHYROXINE (LEVOTHYROXINE) [Concomitant]
     Active Substance: LEVOTHYROXINE
  3. VITAMIN D3 [Concomitant]
     Active Substance: CHOLECALCIFEROL
  4. VITAMIN B12 /00056201/ (CYANOCOBALAMIN) [Concomitant]
  5. ZETIA [Concomitant]
     Active Substance: EZETIMIBE
  6. BABY ASPIRIN (ACETYLSALICYLIC ACID) [Concomitant]
     Active Substance: ASPIRIN
  7. CONTRAVE [Suspect]
     Active Substance: BUPROPION HYDROCHLORIDE\NALTREXONE HYDROCHLORIDE
     Indication: ABNORMAL WEIGHT GAIN
     Dosage: 1 TAB AM, SECOND WEEK
     Route: 048
     Dates: start: 20141030, end: 20141117
  8. LIPOFEN (FENOFIBRATE) [Concomitant]

REACTIONS (2)
  - Vomiting [None]
  - Nausea [None]

NARRATIVE: CASE EVENT DATE: 20141030
